FAERS Safety Report 22100465 (Version 1)
Quarter: 2023Q1

REPORT INFORMATION
  Report Type: Spontaneous
  Country: CN (occurrence: CN)
  Receive Date: 20230316
  Receipt Date: 20230316
  Transmission Date: 20230418
  Serious: Yes (Hospitalization, Other)
  Sender: FDA-Public Use
  Company Number: None

PATIENT
  Age: 15 Year
  Sex: Female
  Weight: 51 kg

DRUGS (6)
  1. CYCLOPHOSPHAMIDE [Suspect]
     Active Substance: CYCLOPHOSPHAMIDE
     Indication: Acute lymphocytic leukaemia
     Dosage: 1.55 G, QD, DILUTED WITH NORMAL SALINE(NS) 500ML
     Route: 041
     Dates: start: 20230109, end: 20230109
  2. SODIUM CHLORIDE [Suspect]
     Active Substance: SODIUM CHLORIDE
     Indication: Medication dilution
     Dosage: 500 ML, QD, USED TO DILUTE CYCLOPHOSPHAMIDE 1.55G
     Route: 041
     Dates: start: 20230109, end: 20230109
  3. SODIUM CHLORIDE [Suspect]
     Active Substance: SODIUM CHLORIDE
     Dosage: 100 ML, QD, USED TO DILUTE CYTARABINE HYDROCHLORIDE 100MG
     Route: 041
     Dates: start: 20230110, end: 20230114
  4. SODIUM CHLORIDE [Suspect]
     Active Substance: SODIUM CHLORIDE
     Dosage: 100 ML, QD, USED TO DILUTE CYTARABINE HYDROCHLORIDE 100MG
     Route: 041
     Dates: start: 20230116, end: 20230120
  5. CYTARABINE HYDROCHLORIDE [Suspect]
     Active Substance: CYTARABINE HYDROCHLORIDE
     Indication: Acute lymphocytic leukaemia
     Dosage: 100 MG, QD, DILUTED WITH NORMAL SALINE(NS) 100ML
     Route: 041
     Dates: start: 20230110, end: 20230114
  6. CYTARABINE HYDROCHLORIDE [Suspect]
     Active Substance: CYTARABINE HYDROCHLORIDE
     Dosage: 100 MG, QD, DILUTED WITH NORMAL SALINE(NS) 100ML
     Route: 041
     Dates: start: 20230116, end: 20230120

REACTIONS (1)
  - Myelosuppression [Recovering/Resolving]

NARRATIVE: CASE EVENT DATE: 20230120
